FAERS Safety Report 8511011 (Version 2)
Quarter: 2012Q4

REPORT INFORMATION
  Report Type: 
  Country: NL (occurrence: NL)
  Receive Date: 20120413
  Receipt Date: 20120829
  Transmission Date: 20130627
  Serious: Yes (Other)
  Sender: FDA-Public Use
  Company Number: CHNY2012NL000508

PATIENT
  Age: 66 Year
  Sex: Female

DRUGS (5)
  1. TAVEGYL [Suspect]
     Indication: HYPERSENSITIVITY
     Dosage: 1 mg, QD
     Route: 048
  2. TAVEGYL [Suspect]
     Dosage: 2 mg, QD
     Route: 048
  3. ARIMIDEX ^ASTRAZENECA^ [Suspect]
     Indication: BREAST CANCER
     Dosage: Unk
  4. EZETROL [Concomitant]
     Indication: HYPERCHOLESTEROLAEMIA
  5. ATORVASTATIN [Concomitant]
     Indication: HYPERCHOLESTEROLAEMIA

REACTIONS (3)
  - Agranulocytosis [Not Recovered/Not Resolved]
  - Mouth ulceration [Not Recovered/Not Resolved]
  - Oropharyngeal pain [Not Recovered/Not Resolved]
